FAERS Safety Report 8182923-3 (Version None)
Quarter: 2012Q1

REPORT INFORMATION
  Report Type: 
  Country: None (occurrence: None)
  Receive Date: 20120305
  Receipt Date: 20120229
  Transmission Date: 20120608
  Serious: Yes (Hospitalization)
  Sender: FDA-Public Use
  Company Number: US-AMGEN-USASP2012013476

PATIENT
  Age: 45 Year
  Sex: Female
  Weight: 100 kg

DRUGS (13)
  1. PACLITAXEL [Suspect]
     Indication: BREAST CANCER
     Dosage: 80 MG/M2, UNK
     Route: 042
     Dates: start: 20110830
  2. CYCLOPHOSPHAMIDE [Suspect]
     Indication: BREAST CANCER
     Dosage: 600 MG/M2, UNK
     Route: 042
     Dates: start: 20110830
  3. EFFEXOR [Concomitant]
  4. DESYREL [Concomitant]
  5. NEULASTA [Suspect]
     Indication: CHEMOTHERAPY
     Dosage: 6 MG, UNK
  6. HYDROCHLOROTHIAZIDE [Concomitant]
  7. DETROL [Concomitant]
  8. SEROQUEL [Concomitant]
  9. TRAZODONE HCL [Concomitant]
  10. LISINOPRIL [Concomitant]
  11. BEVACIZUMAB [Suspect]
     Indication: BREAST CANCER
     Dosage: 10 MG/KG, UNK
     Dates: start: 20110830
  12. DOXORUBICIN HCL [Suspect]
     Indication: BREAST CANCER
     Dosage: 60 MG/M2, UNK
     Route: 042
     Dates: start: 20110830
  13. LAMOTRIGINE [Concomitant]

REACTIONS (1)
  - ARTHRITIS INFECTIVE [None]
